FAERS Safety Report 13622799 (Version 3)
Quarter: 2017Q3

REPORT INFORMATION
  Report Type: Report from Study
  Country: None (occurrence: AR)
  Receive Date: 20170607
  Receipt Date: 20170714
  Transmission Date: 20171127
  Serious: Yes (Other)
  Sender: FDA-Public Use
  Company Number: AR-ABBVIE-17P-007-1999448-00

PATIENT
  Age: 37 Year
  Sex: Male

DRUGS (2)
  1. ZEMPLAR [Suspect]
     Active Substance: PARICALCITOL
     Dosage: 2 AMPULES WITH DIALYSIS, TOTAL OF 6 AMPULES PER WEEK.
     Route: 050
  2. ZEMPLAR [Suspect]
     Active Substance: PARICALCITOL
     Indication: HYPERPARATHYROIDISM SECONDARY
     Route: 042
     Dates: start: 20130601, end: 201705

REACTIONS (3)
  - Pain in extremity [Unknown]
  - Parathyroid gland enlargement [Not Recovered/Not Resolved]
  - Blood parathyroid hormone increased [Unknown]

NARRATIVE: CASE EVENT DATE: 201705
